FAERS Safety Report 6575862-2 (Version None)
Quarter: 2010Q1

REPORT INFORMATION
  Report Type: 
  Country: None (occurrence: None)
  Receive Date: 20100202
  Receipt Date: 20100118
  Transmission Date: 20100710
  Serious: Yes (Death)
  Sender: FDA-Public Use
  Company Number: 2010S1000069

PATIENT
  Age: 51 Year
  Sex: Female

DRUGS (6)
  1. ROXANOL [Suspect]
     Dosage: PO
     Route: 048
     Dates: end: 20080101
  2. BENZODIAZEPINE [Suspect]
     Dosage: PO
     Route: 048
     Dates: end: 20080101
  3. PREGABALIN [Suspect]
     Dosage: PO
     Route: 048
     Dates: end: 20080101
  4. DULOXETINE HYDROCHLORIDE [Suspect]
     Dosage: PO
     Route: 048
     Dates: end: 20080101
  5. HYDROCODONE BITARTRATE AND ACETAMINOPHEN [Concomitant]
  6. TOPIRAMATE [Concomitant]

REACTIONS (20)
  - ALANINE AMINOTRANSFERASE INCREASED [None]
  - APNOEA [None]
  - ASPARTATE AMINOTRANSFERASE INCREASED [None]
  - ASPIRATION [None]
  - BLOOD BICARBONATE DECREASED [None]
  - BLOOD GLUCOSE INCREASED [None]
  - BLOOD POTASSIUM INCREASED [None]
  - BODY TEMPERATURE DECREASED [None]
  - BRAIN DEATH [None]
  - BRAIN OEDEMA [None]
  - CARDIAC ARREST [None]
  - COMA SCALE ABNORMAL [None]
  - COMPLETED SUICIDE [None]
  - DEPRESSED LEVEL OF CONSCIOUSNESS [None]
  - DRUG TOXICITY [None]
  - HAEMOGLOBIN DECREASED [None]
  - HYPOTENSION [None]
  - PUPIL FIXED [None]
  - RESPIRATORY ARREST [None]
  - WHITE BLOOD CELL COUNT INCREASED [None]
